FAERS Safety Report 15733398 (Version 2)
Quarter: 2019Q3

REPORT INFORMATION
  Report Type: Report from Study
  Country: US (occurrence: US)
  Receive Date: 20181218
  Receipt Date: 20190905
  Transmission Date: 20191004
  Serious: Yes (Other)
  Sender: FDA-Public Use
  Company Number: PHEH2018US051840

PATIENT
  Sex: Male

DRUGS (2)
  1. GILENYA [Suspect]
     Active Substance: FINGOLIMOD HYDROCHLORIDE
     Dosage: 0.5 MG, QD
     Route: 048
  2. GILENYA [Suspect]
     Active Substance: FINGOLIMOD HYDROCHLORIDE
     Indication: MULTIPLE SCLEROSIS
     Dosage: 0.5 MG, QD
     Route: 048
     Dates: start: 201802

REACTIONS (8)
  - Contusion [Unknown]
  - Paraesthesia [Unknown]
  - Secondary progressive multiple sclerosis [Unknown]
  - Thinking abnormal [Unknown]
  - Mobility decreased [Unknown]
  - Fall [Unknown]
  - Scratch [Unknown]
  - Asthenia [Unknown]
